FAERS Safety Report 6540173-8 (Version None)
Quarter: 2010Q1

REPORT INFORMATION
  Report Type: 
  Country: None (occurrence: None)
  Receive Date: 20100112
  Receipt Date: 20091216
  Transmission Date: 20100710
  Serious: Yes (Hospitalization)
  Sender: FDA-Public Use
  Company Number: 20090608

PATIENT
  Age: 76 Year
  Sex: Male

DRUGS (12)
  1. VENOFER [Suspect]
     Indication: IRON DEFICIENCY ANAEMIA
     Dosage: 200 MG - DILUT + DURATION, INTRAVENOUS
     Route: 042
     Dates: start: 20091117, end: 20091118
  2. VENOFER [Suspect]
     Indication: RENAL IMPAIRMENT
     Dosage: 200 MG - DILUT + DURATION, INTRAVENOUS
     Route: 042
     Dates: start: 20091117, end: 20091118
  3. COD LIVER OIL (SOLUABLE VITAMINS A AND D) [Concomitant]
  4. COZAAR [Concomitant]
  5. DOXAZOSIN MESYLATE [Concomitant]
  6. ISOSORBIDE (ISOSORBIDE) [Concomitant]
  7. LASIX [Concomitant]
  8. METOPROLOL (METOPROLOL) [Concomitant]
  9. NOVOLIN 70/30 [Concomitant]
  10. RENVELA [Concomitant]
  11. VITAMIN B12 (COBALAMIN) [Concomitant]
  12. VITAMIN D [Concomitant]

REACTIONS (1)
  - ANGINA UNSTABLE [None]
